FAERS Safety Report 8898767 (Version 2)
Quarter: 2012Q4

REPORT INFORMATION
  Report Type: 
  Country: JP (occurrence: JP)
  Receive Date: 20121109
  Receipt Date: 20121116
  Transmission Date: 20130627
  Serious: Yes (Life-Threatening)
  Sender: FDA-Public Use
  Company Number: JP-BAYER-2012-117200

PATIENT
  Age: 72 Year
  Sex: Male

DRUGS (5)
  1. BAYASPIRIN [Suspect]
     Indication: CEREBROVASCULAR ACCIDENT PROPHYLAXIS
     Dosage: 100 mg, QD
     Route: 048
     Dates: start: 20120906, end: 20120918
  2. BAYASPIRIN [Suspect]
     Indication: CEREBROVASCULAR ACCIDENT PROPHYLAXIS
     Dosage: 100 mg, QD
     Route: 048
     Dates: start: 20120928, end: 20121009
  3. URIEF [Suspect]
     Dosage: UNK
     Route: 048
  4. AMLODIN [Suspect]
     Dosage: UNK
     Route: 048
  5. LANSOPRAZOLE [Suspect]
     Dosage: UNK
     Route: 048

REACTIONS (4)
  - Toxic epidermal necrolysis [Recovered/Resolved]
  - Pyrexia [Recovered/Resolved]
  - Generalised erythema [Recovered/Resolved]
  - Toxic epidermal necrolysis [None]
